FAERS Safety Report 7425422-6 (Version None)
Quarter: 2011Q2

REPORT INFORMATION
  Report Type: 
  Country: None (occurrence: None)
  Receive Date: 20110420
  Receipt Date: 20110412
  Transmission Date: 20111010
  Serious: Yes (Other)
  Sender: FDA-Public Use
  Company Number: US-ASTELLAS-2011US001547

PATIENT
  Sex: Male
  Weight: 77 kg

DRUGS (4)
  1. PROGRAF [Suspect]
     Indication: LIVER TRANSPLANT
     Dosage: 2 MG, BID
     Route: 048
     Dates: start: 20090624
  2. CELLCEPT [Concomitant]
     Indication: TRANSPLANT
     Dosage: 500 MG, BID
     Route: 048
     Dates: start: 20090624
  3. NEXIUM [Concomitant]
     Indication: DYSPEPSIA
     Dosage: 40 MG, UID/QD
     Route: 048
  4. AMLODIPINE [Concomitant]
     Indication: BLOOD PRESSURE
     Dosage: 5 MG, UID/QD
     Route: 048

REACTIONS (2)
  - FALL [None]
  - BACK INJURY [None]
